FAERS Safety Report 8052415-0 (Version None)
Quarter: 2012Q1

REPORT INFORMATION
  Report Type: 
  Country: None (occurrence: None)
  Receive Date: 20120118
  Receipt Date: 20120112
  Transmission Date: 20120608
  Serious: Yes (Hospitalization, Other)
  Sender: FDA-Public Use
  Company Number: US-PFIZER INC-2009303997

PATIENT
  Sex: Male

DRUGS (2)
  1. CHANTIX [Suspect]
     Indication: SMOKING CESSATION THERAPY
     Dosage: UNK
     Route: 048
     Dates: start: 20070501
  2. CHANTIX [Suspect]
     Indication: NICOTINE DEPENDENCE

REACTIONS (9)
  - CHRONIC OBSTRUCTIVE PULMONARY DISEASE [None]
  - DEPRESSION [None]
  - PNEUMONIA [None]
  - TYPE 2 DIABETES MELLITUS [None]
  - EMPHYSEMA [None]
  - INSOMNIA [None]
  - MENTAL DISORDER [None]
  - ANXIETY [None]
  - NIGHTMARE [None]
